FAERS Safety Report 15902750 (Version 2)
Quarter: 2019Q1

REPORT INFORMATION
  Report Type: Spontaneous
  Country: US (occurrence: US)
  Receive Date: 20190202
  Receipt Date: 20190306
  Transmission Date: 20190417
  Serious: No
  Sender: FDA-Public Use
  Company Number: US-BIOGEN-2019BI00691210

PATIENT
  Sex: Female

DRUGS (1)
  1. AVONEX [Suspect]
     Active Substance: INTERFERON BETA-1A
     Indication: MULTIPLE SCLEROSIS
     Dosage: I.M. WEEKLT
     Route: 050
     Dates: start: 20100730

REACTIONS (3)
  - Injection site bruising [Unknown]
  - Vascular injury [Recovered/Resolved]
  - Injection site pain [Unknown]
